APPROVED DRUG PRODUCT: KETOROLAC TROMETHAMINE
Active Ingredient: KETOROLAC TROMETHAMINE
Strength: 30MG/ML
Dosage Form/Route: INJECTABLE;INJECTION
Application: A209900 | Product #001 | TE Code: AP
Applicant: BAXTER HEALTHCARE CORP
Approved: Sep 15, 2017 | RLD: No | RS: No | Type: RX